FAERS Safety Report 16180065 (Version 1)
Quarter: 2019Q2

REPORT INFORMATION
  Report Type: Spontaneous
  Country: US (occurrence: US)
  Receive Date: 20190409
  Receipt Date: 20190409
  Transmission Date: 20190711
  Serious: Yes (Other)
  Sender: FDA-Public Use
  Company Number: None

PATIENT
  Age: 75 Year
  Sex: Female
  Weight: 73.71 kg

DRUGS (15)
  1. AMLODIPINE [Concomitant]
     Active Substance: AMLODIPINE BESYLATE
  2. THERATEARS [Concomitant]
     Active Substance: CARBOXYMETHYLCELLULOSE SODIUM
  3. MULTIVITAMIN [Concomitant]
     Active Substance: VITAMINS
  4. CAPECITABINE. [Suspect]
     Active Substance: CAPECITABINE
     Indication: BREAST CANCER
     Route: 048
     Dates: start: 20190319
  5. VENTOLIN [Concomitant]
     Active Substance: ALBUTEROL SULFATE
  6. ACETAMINOPHEN. [Concomitant]
     Active Substance: ACETAMINOPHEN
  7. ATENOLOL. [Concomitant]
     Active Substance: ATENOLOL
  8. FENTANYL. [Concomitant]
     Active Substance: FENTANYL
  9. LORAZEPAM. [Concomitant]
     Active Substance: LORAZEPAM
  10. FLOVENT [Concomitant]
     Active Substance: FLUTICASONE PROPIONATE
  11. ONDANSETRON [Concomitant]
     Active Substance: ONDANSETRON
  12. CAPECITABINE. [Suspect]
     Active Substance: CAPECITABINE
     Indication: BREAST CANCER
     Route: 048
     Dates: start: 20190114
  13. SULINDAC. [Concomitant]
     Active Substance: SULINDAC
  14. CLOTRIMAZOLE. [Concomitant]
     Active Substance: CLOTRIMAZOLE
  15. OXYCODONE [Concomitant]
     Active Substance: OXYCODONE

REACTIONS (1)
  - Fatigue [None]
